FAERS Safety Report 24116029 (Version 1)
Quarter: 2024Q3

REPORT INFORMATION
  Report Type: Report from Study
  Country: GB (occurrence: GB)
  Receive Date: 20240722
  Receipt Date: 20240722
  Transmission Date: 20241016
  Serious: Yes (Other)
  Sender: UCB
  Company Number: GB-UCBSA-2024036485

PATIENT
  Sex: Male

DRUGS (2)
  1. FINTEPLA [Suspect]
     Active Substance: FENFLURAMINE
     Indication: Severe myoclonic epilepsy of infancy
     Dosage: 0.01 MILLIGRAM/KILOGRAM
  2. FINTEPLA [Suspect]
     Active Substance: FENFLURAMINE
     Dosage: 0.035 MILLIGRAM/KILOGRAM

REACTIONS (4)
  - Seizure [Not Recovered/Not Resolved]
  - Drug ineffective [Unknown]
  - Off label use [Unknown]
  - Underdose [Unknown]
